FAERS Safety Report 6673836-4 (Version None)
Quarter: 2010Q2

REPORT INFORMATION
  Report Type: 
  Country: None (occurrence: None)
  Receive Date: 20100407
  Receipt Date: 20100324
  Transmission Date: 20101027
  Serious: Yes (Other)
  Sender: FDA-Public Use
  Company Number: 2010-00355

PATIENT
  Age: 60 Year
  Sex: Female
  Weight: 81.6475 kg

DRUGS (1)
  1. LISINOPRIL AND HYDROCHLOROTHIAZIDE [Suspect]
     Indication: DRUG USE FOR UNKNOWN INDICATION
     Dosage: (1 IN 1 D), PER ORAL
     Route: 048

REACTIONS (17)
  - ALOPECIA [None]
  - AMNESIA [None]
  - BACK PAIN [None]
  - CHOKING [None]
  - COUGH [None]
  - DIARRHOEA [None]
  - DIZZINESS [None]
  - DYSPHAGIA [None]
  - FATIGUE [None]
  - HYPOACUSIS [None]
  - PALPITATIONS [None]
  - POLLAKIURIA [None]
  - PRURITUS GENERALISED [None]
  - RASH [None]
  - VISION BLURRED [None]
  - VOMITING [None]
  - WHEEZING [None]
